FAERS Safety Report 4760365-8 (Version None)
Quarter: 2005Q3

REPORT INFORMATION
  Report Type: 
  Country: None (occurrence: None)
  Receive Date: 20050902
  Receipt Date: 20040819
  Transmission Date: 20060218
  Serious: Yes (Hospitalization)
  Sender: FDA-Public Use
  Company Number: FR-ABBOTT-04P-056-0271188-00

PATIENT
  Sex: Female
  Weight: 56 kg

DRUGS (14)
  1. HUMIRA [Suspect]
     Indication: CROHN'S DISEASE
     Route: 058
     Dates: start: 20040507, end: 20040827
  2. PENTASA [Concomitant]
     Indication: CROHN'S DISEASE
     Dates: start: 20010525, end: 20021201
  3. BUDESONIDE [Concomitant]
     Indication: CROHN'S DISEASE
     Dates: start: 20010712, end: 20011210
  4. AZATHIOPRINE [Concomitant]
     Indication: CROHN'S DISEASE
     Dates: start: 20020829, end: 20030701
  5. AZATHIOPRINE [Concomitant]
     Dates: start: 20030701, end: 20031101
  6. AZATHIOPRINE [Concomitant]
     Dates: start: 20031101
  7. INFLIXIMAB [Concomitant]
     Indication: CROHN'S DISEASE
     Dates: start: 20030723, end: 20030723
  8. INFLIXIMAB [Concomitant]
     Dosage: 5 MG/KG
     Route: 042
     Dates: start: 20031023, end: 20031023
  9. RIFAMPIN AND ISONIAZID [Concomitant]
     Indication: TUBERCULOSIS PROPHYLAXIS
     Dosage: ISONIAZIDE 150 MG AND RIFAMPICINE 300MG
     Dates: start: 20040403, end: 20040702
  10. METOCLOPRAMIDE [Concomitant]
     Indication: VOMITING
     Dates: start: 20040401
  11. BETAMETHASONE DIPROPIONATE [Concomitant]
     Indication: PSORIASIS
     Route: 061
     Dates: start: 20040301
  12. PREDNISOLONE SODIUM PHOSPHATE [Concomitant]
     Indication: CROHN'S DISEASE
     Dates: start: 20030601, end: 20030901
  13. PREDNISOLONE SODIUM PHOSPHATE [Concomitant]
     Dates: start: 20011201, end: 20030601
  14. PARACETAMOL [Concomitant]
     Indication: HEADACHE
     Dates: start: 20040601

REACTIONS (1)
  - ECTOPIC PREGNANCY [None]
